FAERS Safety Report 8248035-5 (Version None)
Quarter: 2012Q1

REPORT INFORMATION
  Report Type: 
  Country: None (occurrence: None)
  Receive Date: 20120330
  Receipt Date: 20120319
  Transmission Date: 20120608
  Serious: Yes (Hospitalization)
  Sender: FDA-Public Use
  Company Number: US-ROCHE-1051029

PATIENT
  Sex: Male
  Weight: 83.99 kg

DRUGS (10)
  1. SPIRIVA [Concomitant]
  2. LISINOPRIL [Concomitant]
  3. OMALIZUMAB [Suspect]
     Indication: ASTHMA
     Dosage: TWO INJECTIONS
     Route: 058
     Dates: start: 20120126
  4. AZITHROMYCIN [Concomitant]
  5. PREDNISONE TAB [Concomitant]
  6. SYMBICORT [Concomitant]
  7. ALBUTEROL [Concomitant]
  8. PERCOCET [Concomitant]
  9. VALIUM [Concomitant]
  10. BUDESONIDE [Concomitant]

REACTIONS (6)
  - HYPERHIDROSIS [None]
  - PAIN [None]
  - PNEUMONIA [None]
  - ASTHENIA [None]
  - DYSPNOEA [None]
  - INFLUENZA LIKE ILLNESS [None]
